FAERS Safety Report 12312083 (Version 1)
Quarter: 2016Q2

REPORT INFORMATION
  Report Type: Spontaneous
  Country: US (occurrence: US)
  Receive Date: 20160427
  Receipt Date: 20160427
  Transmission Date: 20160815
  Serious: Yes (Other)
  Sender: FDA-Public Use
  Company Number: US-TEIKOKU PHARMA USA-TPU2016-00247

PATIENT
  Sex: Female

DRUGS (3)
  1. MUSCLE RELAXANT [Concomitant]
     Active Substance: UNSPECIFIED INGREDIENT
  2. LIDOCAINE PATCH [Suspect]
     Active Substance: LIDOCAINE
     Indication: PAIN
     Route: 061
  3. OPIATES [Concomitant]
     Active Substance: UNSPECIFIED INGREDIENT

REACTIONS (6)
  - Knee arthroplasty [Unknown]
  - Nerve injury [Not Recovered/Not Resolved]
  - Insomnia [Not Recovered/Not Resolved]
  - Bone disorder [Not Recovered/Not Resolved]
  - Spinal operation [Unknown]
  - Fatigue [Not Recovered/Not Resolved]
